FAERS Safety Report 9879380 (Version 1)
Quarter: 2014Q1

REPORT INFORMATION
  Report Type: Spontaneous
  Country: US (occurrence: US)
  Receive Date: 20140206
  Receipt Date: 20140206
  Transmission Date: 20141002
  Serious: Yes (Other)
  Sender: FDA-Public Use
  Company Number: US-TEVA-461052USA

PATIENT
  Age: 18 Year
  Sex: Female
  Weight: 71.28 kg

DRUGS (1)
  1. PARAGARD 380A [Suspect]
     Indication: POST COITAL CONTRACEPTION
     Route: 015
     Dates: start: 20131116, end: 20140131

REACTIONS (4)
  - Device dislocation [Recovered/Resolved]
  - Coital bleeding [Unknown]
  - Pelvic pain [Not Recovered/Not Resolved]
  - Pelvic pain [Unknown]
